FAERS Safety Report 8021167-2 (Version None)
Quarter: 2011Q4

REPORT INFORMATION
  Report Type: 
  Country: None (occurrence: None)
  Receive Date: 20111229
  Receipt Date: 20101124
  Transmission Date: 20120403
  Serious: Yes (Other)
  Sender: FDA-Public Use
  Company Number: ALBSPV-003-10-PT

PATIENT
  Age: 16 Year
  Sex: Female

DRUGS (4)
  1. ALBUMIN (HUMAN) [Suspect]
     Indication: HYPOPROTEINAEMIA
     Dosage: 10 G, I.V.,
     Route: 042
     Dates: start: 20101109, end: 20101109
  2. AMPICILLIN [Concomitant]
  3. DEXTROSE [Concomitant]
  4. SODIUM CHLORIDE [Concomitant]

REACTIONS (4)
  - HYPERSENSITIVITY [None]
  - PRURITUS GENERALISED [None]
  - FACE OEDEMA [None]
  - MATERNAL EXPOSURE DURING PREGNANCY [None]
